FAERS Safety Report 7200310-9 (Version None)
Quarter: 2010Q4

REPORT INFORMATION
  Report Type: 
  Country: None (occurrence: None)
  Receive Date: 20101228
  Receipt Date: 20101220
  Transmission Date: 20110411
  Serious: Yes (Other)
  Sender: FDA-Public Use
  Company Number: B0690400A

PATIENT

DRUGS (3)
  1. ZEFIX 100 [Suspect]
     Indication: PRODUCT USED FOR UNKNOWN INDICATION
     Route: 048
  2. BAKTAR [Concomitant]
     Route: 048
  3. UNKNOWN INJECTION [Concomitant]
     Route: 042

REACTIONS (1)
  - RHABDOMYOLYSIS [None]
